FAERS Safety Report 16083259 (Version 1)
Quarter: 2019Q1

REPORT INFORMATION
  Report Type: Spontaneous
  Country: US (occurrence: US)
  Receive Date: 20190318
  Receipt Date: 20190318
  Transmission Date: 20190418
  Serious: Yes (Hospitalization, Other)
  Sender: FDA-Public Use
  Company Number: US-DRREDDYS-USA/USA/18/0098694

PATIENT
  Age: 71 Year
  Sex: Male

DRUGS (1)
  1. LEVETIRACETAM 1000 MG [Suspect]
     Active Substance: LEVETIRACETAM
     Indication: PRODUCT USED FOR UNKNOWN INDICATION
     Route: 048

REACTIONS (2)
  - Agitation [Recovered/Resolved]
  - Aggression [Recovered/Resolved]
